FAERS Safety Report 16345412 (Version 1)
Quarter: 2019Q2

REPORT INFORMATION
  Report Type: Spontaneous
  Country: US (occurrence: US)
  Receive Date: 20190523
  Receipt Date: 20190523
  Transmission Date: 20190711
  Serious: No
  Sender: FDA-Public Use
  Company Number: US-ASTRAZENECA-2019SE64237

PATIENT
  Sex: Female
  Weight: 50.3 kg

DRUGS (1)
  1. SYMBICORT [Suspect]
     Active Substance: BUDESONIDE\FORMOTEROL FUMARATE DIHYDRATE
     Indication: EMPHYSEMA
     Dosage: 160/.5 MCG TWO PUFFS TWICE A DAY
     Route: 055

REACTIONS (3)
  - Electrocardiogram T wave abnormal [Unknown]
  - Arterial occlusive disease [Not Recovered/Not Resolved]
  - Intentional product misuse [Recovered/Resolved]
